FAERS Safety Report 7111600-2 (Version None)
Quarter: 2010Q4

REPORT INFORMATION
  Report Type: 
  Country: None (occurrence: None)
  Receive Date: 20101118
  Receipt Date: 20100211
  Transmission Date: 20110411
  Serious: No
  Sender: FDA-Public Use
  Company Number: US-TEVA-224298USA

PATIENT
  Sex: Male
  Weight: 120.31 kg

DRUGS (3)
  1. ALBUTEROL SULFATE AUTOHALER [Suspect]
     Indication: BRONCHOSPASM
     Dosage: Q 4-6 HOURS
     Route: 055
     Dates: start: 20100204, end: 20100204
  2. MOMETASONE FUROATE [Concomitant]
  3. CETIRIZINE HYDROCHLORIDE [Concomitant]

REACTIONS (1)
  - TREMOR [None]
